FAERS Safety Report 24418167 (Version 1)
Quarter: 2024Q4

REPORT INFORMATION
  Report Type: Spontaneous
  Country: US (occurrence: US)
  Receive Date: 20241009
  Receipt Date: 20241009
  Transmission Date: 20250115
  Serious: No
  Sender: TAIHO ONCOLOGY INC
  Company Number: US-TAIHOP-2024-009149

PATIENT
  Age: 71 Year
  Sex: Female

DRUGS (1)
  1. INQOVI [Suspect]
     Active Substance: CEDAZURIDINE\DECITABINE
     Indication: Product used for unknown indication
     Dosage: DECITABINE 35MG + CEDAZURIDINE 100 MG?DOSE, FREQUENCY AND CYCLE UNKNOWN
     Route: 048

REACTIONS (1)
  - White blood cell count decreased [Unknown]
